FAERS Safety Report 21660916 (Version 2)
Quarter: 2023Q1

REPORT INFORMATION
  Report Type: Report from Study
  Country: US (occurrence: US)
  Receive Date: 20221130
  Receipt Date: 20230117
  Transmission Date: 20230417
  Serious: Yes (Hospitalization, Other)
  Sender: FDA-Public Use
  Company Number: US-ABBVIE-4217649

PATIENT
  Age: 73 Year
  Sex: Female

DRUGS (1)
  1. SYNTHROID [Suspect]
     Active Substance: LEVOTHYROXINE SODIUM
     Indication: Hypothyroidism
     Route: 048
     Dates: start: 2020

REACTIONS (3)
  - Neoplasm malignant [Recovering/Resolving]
  - Bell^s palsy [Unknown]
  - Pain [Unknown]

NARRATIVE: CASE EVENT DATE: 20220601
